FAERS Safety Report 7759281-9 (Version None)
Quarter: 2011Q3

REPORT INFORMATION
  Report Type: 
  Country: None (occurrence: None)
  Receive Date: 20110915
  Receipt Date: 20110831
  Transmission Date: 20111222
  Serious: Yes (Other)
  Sender: FDA-Public Use
  Company Number: 1000022065

PATIENT
  Age: 61 Year
  Sex: Female
  Weight: 68 kg

DRUGS (4)
  1. ESCITALOPRAM [Suspect]
     Indication: DEPRESSION
     Dosage: ORAL
     Route: 048
     Dates: start: 20080213
  2. EXFORGE (DIOVAN AMLO) (DIOVAIN AMLO) [Concomitant]
  3. DETENSIEL (BISOPROLOL) (BISOPROLOL) [Concomitant]
  4. ESCITALOPRAM [Suspect]
     Indication: DEPRESSION
     Dosage: 10 MG (10 MG, 1 IN 1 D), ORAL
     Route: 048
     Dates: start: 20090213, end: 20110517

REACTIONS (1)
  - CYTOLYTIC HEPATITIS [None]
